FAERS Safety Report 6655210-X (Version None)
Quarter: 2010Q1

REPORT INFORMATION
  Report Type: 
  Country: None (occurrence: None)
  Receive Date: 20100317
  Receipt Date: 20100209
  Transmission Date: 20100710
  Serious: No
  Sender: FDA-Public Use
  Company Number: DSA_42591_2010

PATIENT
  Sex: Female

DRUGS (5)
  1. XENAZINE [Suspect]
     Indication: DRUG USE FOR UNKNOWN INDICATION
     Dosage: 12.5 MG TID ORAL
     Route: 048
  2. SINEMET [Concomitant]
  3. BOTOX [Concomitant]
  4. CRESTOR [Concomitant]
  5. FENOFIBRATE [Concomitant]

REACTIONS (1)
  - DEPRESSION [None]
